FAERS Safety Report 22266856 (Version 1)
Quarter: 2023Q2

REPORT INFORMATION
  Report Type: Spontaneous
  Country: US (occurrence: US)
  Receive Date: 20230428
  Receipt Date: 20230428
  Transmission Date: 20230721
  Serious: No
  Sender: FDA-Public Use
  Company Number: US-PFIZER INC-202101127738

PATIENT
  Age: 30 Year
  Sex: Female

DRUGS (3)
  1. XELJANZ [Interacting]
     Active Substance: TOFACITINIB CITRATE
     Indication: Crohn^s disease
     Dosage: 10 MG
  2. XELJANZ [Interacting]
     Active Substance: TOFACITINIB CITRATE
     Indication: Sacroiliitis
  3. STELARA [Interacting]
     Active Substance: USTEKINUMAB

REACTIONS (2)
  - Drug interaction [Unknown]
  - Off label use [Unknown]
